FAERS Safety Report 10242769 (Version 1)
Quarter: 2014Q2

REPORT INFORMATION
  Report Type: Other
  Country: NG (occurrence: NG)
  Receive Date: 20140617
  Receipt Date: 20140617
  Transmission Date: 20141212
  Serious: Yes (Other)
  Sender: FDA-Public Use
  Company Number: NG-BRISTOL-MYERS SQUIBB COMPANY-20782553

PATIENT
  Age: 1 Decade
  Sex: 0

DRUGS (5)
  1. EFAVIRENZ TABS [Suspect]
     Indication: HIV INFECTION
     Route: 048
  2. RIFAMPIN [Interacting]
     Indication: TUBERCULOSIS
     Route: 065
  3. LORATADINE [Interacting]
     Dosage: TABLET.
     Route: 065
  4. AMODIAQUINE [Interacting]
     Route: 065
  5. CLARITHROMYCIN [Interacting]
     Route: 065

REACTIONS (1)
  - Drug interaction [Unknown]
